FAERS Safety Report 10881037 (Version 1)
Quarter: 2015Q1

REPORT INFORMATION
  Report Type: Spontaneous
  Country: US (occurrence: US)
  Receive Date: 20150303
  Receipt Date: 20150303
  Transmission Date: 20150721
  Serious: Yes (Other)
  Sender: FDA-Public Use
  Company Number: US-SA-2014SA177357

PATIENT
  Age: 28 Month
  Sex: Male
  Weight: 11 kg

DRUGS (17)
  1. LUMIZYME [Suspect]
     Active Substance: ALGLUCOSIDASE ALFA
     Indication: GLYCOGEN STORAGE DISEASE TYPE II
     Route: 041
     Dates: start: 20141219
  2. COLACE [Concomitant]
     Active Substance: DOCUSATE SODIUM
     Dosage: EQUIV LIQUID
     Dates: start: 20141215, end: 20141229
  3. DIPHENHYDRAMINE [Concomitant]
     Active Substance: DIPHENHYDRAMINE
     Route: 042
     Dates: start: 20141219
  4. CLINDAMYCIN [Concomitant]
     Active Substance: CLINDAMYCIN\CLINDAMYCIN PHOSPHATE
     Dosage: FOR 2 DOSES DOSE:12 MILLIGRAM(S)/MILLILITRE
     Route: 042
     Dates: start: 20141218
  5. HEPARIN [Concomitant]
     Active Substance: HEPARIN SODIUM
     Dosage: CENTRAL L FLUSH (10/ML) 30 UNIT CENTRAL AS-DIR AD
     Dates: start: 20141215
  6. CEFOXITIN [Concomitant]
     Active Substance: CEFOXITIN\CEFOXITIN SODIUM
     Dosage: 300 MG IV/SYR NON-STD FOR 2 DOSES DOSE:20 MILLIGRAM(S)/MILLILITRE
     Route: 042
     Dates: start: 20141219
  7. IBUPROFEN. [Concomitant]
     Active Substance: IBUPROFEN
     Indication: PYREXIA
     Route: 048
     Dates: start: 20141219, end: 20150102
  8. POTASSIUM CHLORIDE. [Concomitant]
     Active Substance: POTASSIUM CHLORIDE
     Route: 042
     Dates: start: 20141219, end: 20141220
  9. DIPHENHYDRAMINE [Concomitant]
     Active Substance: DIPHENHYDRAMINE
     Route: 042
     Dates: start: 20141219
  10. FAMOTIDINE. [Concomitant]
     Active Substance: FAMOTIDINE
     Route: 042
     Dates: start: 20141218, end: 20141225
  11. SODIUM CHLORIDE. [Concomitant]
     Active Substance: SODIUM CHLORIDE
     Dosage: 250 ML, 249 ML/ HEPARIN PICU 1 UNIT/ML 250 UNIT
     Dates: start: 20141218
  12. GLYCERIN. [Concomitant]
     Active Substance: GLYCERIN
     Indication: CONSTIPATION
     Route: 054
     Dates: start: 20141219
  13. MILK OF MAGNESIA [Concomitant]
     Active Substance: MAGNESIUM HYDROXIDE
     Dates: start: 20141217, end: 20141217
  14. MORPHINE SULFATE. [Concomitant]
     Active Substance: MORPHINE SULFATE
     Indication: PAIN
     Route: 042
     Dates: start: 20141218, end: 20141227
  15. ACETAMINOPHEN. [Concomitant]
     Active Substance: ACETAMINOPHEN
     Route: 042
     Dates: start: 20141219, end: 20141219
  16. LUMIZYME [Suspect]
     Active Substance: ALGLUCOSIDASE ALFA
     Indication: GLYCOGEN STORAGE DISEASE TYPE II
     Route: 041
     Dates: start: 20141211, end: 20141219
  17. LORAZEPAM. [Concomitant]
     Active Substance: LORAZEPAM
     Dosage: PRN
     Dates: start: 20141215, end: 20141222

REACTIONS (5)
  - Tachycardia [Recovered/Resolved]
  - Hypertension [Recovered/Resolved]
  - Rash [Recovered/Resolved]
  - Tracheal operation [Recovered/Resolved]
  - Gastrointestinal surgery [Recovered/Resolved]

NARRATIVE: CASE EVENT DATE: 20141218
